FAERS Safety Report 19716164 (Version 5)
Quarter: 2024Q3

REPORT INFORMATION
  Report Type: Spontaneous
  Country: US (occurrence: US)
  Receive Date: 20210818
  Receipt Date: 20240827
  Transmission Date: 20241016
  Serious: No
  Sender: PFIZER
  Company Number: US-PFIZER INC-2021593271

PATIENT
  Age: 83 Year
  Sex: Female

DRUGS (1)
  1. IBRANCE [Suspect]
     Active Substance: PALBOCICLIB
     Indication: Hormone receptor positive breast cancer
     Dosage: 125 MG, CYCLIC (1 TABLET BY MOUTH DAILY FOR 21 DAYS, THEN 7 DAYS OFF)
     Route: 048

REACTIONS (2)
  - Malaise [Unknown]
  - White blood cell count abnormal [Unknown]
